FAERS Safety Report 4485513-9 (Version None)
Quarter: 2004Q4

REPORT INFORMATION
  Report Type: 
  Country: None (occurrence: None)
  Receive Date: 20041026
  Receipt Date: 20041019
  Transmission Date: 20050328
  Serious: Yes (Death)
  Sender: FDA-Public Use
  Company Number: US-BRISTOL-MYERS SQUIBB COMPANY-12741559

PATIENT
  Age: 40 Year

DRUGS (3)
  1. GLYBURIDE AND METFORMIN HCL [Suspect]
     Route: 048
  2. SERTRALINE HCL [Suspect]
     Route: 048
  3. RISPERIDONE [Suspect]
     Route: 048

REACTIONS (3)
  - COMPLETED SUICIDE [None]
  - INTENTIONAL OVERDOSE [None]
  - MULTIPLE DRUG OVERDOSE INTENTIONAL [None]
